FAERS Safety Report 16240592 (Version 4)
Quarter: 2020Q1

REPORT INFORMATION
  Report Type: Spontaneous
  Country: US (occurrence: US)
  Receive Date: 20190425
  Receipt Date: 20200317
  Transmission Date: 20200409
  Serious: Yes (Other)
  Sender: FDA-Public Use
  Company Number: US-ASTRAZENECA-2018SF65521

PATIENT
  Age: 54 Year
  Sex: Male
  Weight: 116.6 kg

DRUGS (38)
  1. FAMOTIDINE. [Concomitant]
     Active Substance: FAMOTIDINE
     Indication: GASTROOESOPHAGEAL REFLUX DISEASE
     Dates: start: 2017
  2. VANCORMYCIN [Concomitant]
     Indication: ANTIBIOTIC THERAPY
  3. LISINOPRIL. [Concomitant]
     Active Substance: LISINOPRIL
     Indication: HYPERTENSION
     Dates: start: 2016
  4. SENSIPAR [Concomitant]
     Active Substance: CINACALCET HYDROCHLORIDE
  5. NEXIUM [Suspect]
     Active Substance: ESOMEPRAZOLE MAGNESIUM
     Indication: GASTROOESOPHAGEAL REFLUX DISEASE
     Route: 048
     Dates: start: 2009
  6. NEXIUM [Suspect]
     Active Substance: ESOMEPRAZOLE MAGNESIUM
     Indication: GASTROOESOPHAGEAL REFLUX DISEASE
     Dosage: GENERIC40.0MG UNKNOWN
     Route: 065
     Dates: start: 2011, end: 2013
  7. CLINDAMYCIN. [Concomitant]
     Active Substance: CLINDAMYCIN
  8. VANCORMYCIN [Concomitant]
     Indication: VITAMIN C DEFICIENCY
  9. PANTOPRAZOLE [Concomitant]
     Active Substance: PANTOPRAZOLE
  10. FUROSEMIDE. [Concomitant]
     Active Substance: FUROSEMIDE
  11. MIRALAX [Concomitant]
     Active Substance: POLYETHYLENE GLYCOL 3350
  12. ZOCOR [Concomitant]
     Active Substance: SIMVASTATIN
  13. VALSARTAN. [Concomitant]
     Active Substance: VALSARTAN
  14. NEXIUM [Suspect]
     Active Substance: ESOMEPRAZOLE MAGNESIUM
     Indication: GASTROOESOPHAGEAL REFLUX DISEASE
     Dosage: GENERIC40.0MG UNKNOWN
     Route: 048
     Dates: start: 20100930
  15. ATORVASTATIN [Concomitant]
     Active Substance: ATORVASTATIN
     Indication: BLOOD PRESSURE MEASUREMENT
     Dates: start: 2011
  16. FEXOFENADINE [Concomitant]
     Active Substance: FEXOFENADINE HYDROCHLORIDE
  17. HYDRALAZINE [Concomitant]
     Active Substance: HYDRALAZINE HYDROCHLORIDE
  18. ZYMAXID [Concomitant]
     Active Substance: GATIFLOXACIN
  19. FLEXERIL [Concomitant]
     Active Substance: CYCLOBENZAPRINE HYDROCHLORIDE
  20. NEXIUM [Suspect]
     Active Substance: ESOMEPRAZOLE MAGNESIUM
     Indication: GASTROOESOPHAGEAL REFLUX DISEASE
     Dosage: 40.0MG UNKNOWN
     Route: 048
     Dates: start: 2011, end: 2013
  21. METOPROLOL. [Concomitant]
     Active Substance: METOPROLOL
  22. ACETAMINOPHENE [Concomitant]
     Active Substance: ACETAMINOPHEN
  23. CALCIUM ACETATE. [Concomitant]
     Active Substance: CALCIUM ACETATE
  24. CLONIDINE. [Concomitant]
     Active Substance: CLONIDINE
  25. TUMS [Concomitant]
     Active Substance: CALCIUM CARBONATE
  26. EPOGEN [Concomitant]
     Active Substance: ERYTHROPOIETIN
  27. NEXIUM 24HR [Suspect]
     Active Substance: ESOMEPRAZOLE MAGNESIUM
     Indication: GASTROOESOPHAGEAL REFLUX DISEASE
     Dosage: ONCE A DAY
     Route: 048
     Dates: start: 2009, end: 2011
  28. ASPIRIN. [Concomitant]
     Active Substance: ASPIRIN
     Indication: CARDIAC DISORDER
  29. TOGEO [Concomitant]
     Indication: DIABETES MELLITUS
     Dates: start: 2009
  30. ERGOCALCIFEROL. [Concomitant]
     Active Substance: ERGOCALCIFEROL
  31. TORSEMIDE. [Concomitant]
     Active Substance: TORSEMIDE
  32. TEKTURNA [Concomitant]
     Active Substance: ALISKIREN HEMIFUMARATE
  33. AMLODIPINE [Concomitant]
     Active Substance: AMLODIPINE BESYLATE
  34. NEXIUM 24HR [Suspect]
     Active Substance: ESOMEPRAZOLE MAGNESIUM
     Indication: GASTROOESOPHAGEAL REFLUX DISEASE
     Route: 048
  35. NIFEDIPINE. [Concomitant]
     Active Substance: NIFEDIPINE
  36. ASCORBIC ACID. [Concomitant]
     Active Substance: ASCORBIC ACID
  37. LOSARTAN. [Concomitant]
     Active Substance: LOSARTAN
  38. BROMFENAC [Concomitant]
     Active Substance: BROMFENAC SODIUM

REACTIONS (6)
  - End stage renal disease [Unknown]
  - Nephrogenic anaemia [Unknown]
  - Renal failure [Not Recovered/Not Resolved]
  - Rebound acid hypersecretion [Unknown]
  - Chronic kidney disease [Unknown]
  - Renal injury [Unknown]

NARRATIVE: CASE EVENT DATE: 2009
